FAERS Safety Report 20691435 (Version 1)
Quarter: 2022Q2

REPORT INFORMATION
  Report Type: Spontaneous
  Country: US (occurrence: None)
  Receive Date: 20220406
  Receipt Date: 20220406
  Transmission Date: 20220721
  Serious: Yes (Other)
  Sender: FDA-Public Use
  Company Number: None

PATIENT
  Sex: Female

DRUGS (2)
  1. IMATINIB [Suspect]
     Active Substance: IMATINIB
     Indication: Soft tissue sarcoma
     Dosage: TAKE 1 TABLET (400 MG) BY MOUTH ONCE DAILY WITH A MEALAND A LARGE GLASS OF WATER
     Route: 048
     Dates: start: 20191120
  2. TYLENOL [Concomitant]
     Active Substance: ACETAMINOPHEN

REACTIONS (2)
  - Therapy interrupted [None]
  - Neoplasm recurrence [None]
